FAERS Safety Report 19866519 (Version 3)
Quarter: 2022Q1

REPORT INFORMATION
  Report Type: Report from Study
  Country: US (occurrence: US)
  Receive Date: 20210921
  Receipt Date: 20220125
  Transmission Date: 20220423
  Serious: Yes (Other)
  Sender: FDA-Public Use
  Company Number: US-NOVARTISPH-NVSC2021US206759

PATIENT
  Sex: Female
  Weight: 5.76 kg

DRUGS (9)
  1. ZOLGENSMA [Suspect]
     Active Substance: ONASEMNOGENE ABEPARVOVEC-XIOI
     Indication: Spinal muscular atrophy
     Dosage: 33 ML, ONCE/SINGLE
     Route: 042
     Dates: start: 20210819, end: 20210819
  2. PREDNISOLONE [Concomitant]
     Active Substance: PREDNISOLONE
     Indication: Product used for unknown indication
     Dosage: UNK
     Route: 065
  3. ISOPTO ATROPINE [Concomitant]
     Active Substance: ATROPINE SULFATE
     Indication: Product used for unknown indication
     Dosage: 1/2 DROPS, BID
     Route: 065
     Dates: start: 20210823
  4. OMEPRAZOLE [Concomitant]
     Active Substance: OMEPRAZOLE
     Indication: Product used for unknown indication
     Dosage: 2.5 ML, BID
     Route: 048
     Dates: start: 20210818
  5. IRON\VITAMINS [Concomitant]
     Active Substance: IRON\VITAMINS
     Indication: Product used for unknown indication
     Dosage: 1 ML, QD
     Route: 065
     Dates: start: 20210809
  6. PREDNISOLONE SODIUM PHOSPHATE [Concomitant]
     Active Substance: PREDNISOLONE SODIUM PHOSPHATE
     Indication: Product used for unknown indication
     Dosage: 1.8 ML, QD
     Route: 048
     Dates: start: 20210818
  7. ERYTHROMYCIN ETHYLSUCCINATE [Concomitant]
     Active Substance: ERYTHROMYCIN ETHYLSUCCINATE
     Indication: Gastrointestinal disorder
     Dosage: 0.95 ML, TID
     Route: 048
     Dates: start: 20210909
  8. VITAMINS [Concomitant]
     Active Substance: VITAMINS
     Indication: Product used for unknown indication
     Dosage: 1 ML, QD
     Route: 065
     Dates: start: 20210809
  9. ATROPINE [Concomitant]
     Active Substance: ATROPINE
     Indication: Product used for unknown indication
     Dosage: UNK (1-2 DROPS)
     Route: 065
     Dates: start: 20210825

REACTIONS (2)
  - Bradycardia [Recovered/Resolved]
  - Blood pressure increased [Recovered/Resolved]
